FAERS Safety Report 20964224 (Version 1)
Quarter: 2022Q2

REPORT INFORMATION
  Report Type: Spontaneous
  Country: US (occurrence: US)
  Receive Date: 20220615
  Receipt Date: 20220615
  Transmission Date: 20220720
  Serious: Yes (Hospitalization, Other)
  Sender: FDA-Public Use
  Company Number: US-PFIZER INC-202200836012

PATIENT
  Age: 68 Year
  Sex: Female
  Weight: 56.7 kg

DRUGS (2)
  1. PAXLOVID [Suspect]
     Active Substance: NIRMATRELVIR\RITONAVIR
     Indication: COVID-19 treatment
     Dosage: 3 DF, 2X/DAY (3 TABLETS IN THE MORNING AND 3 TABLETS IN THE EVENING)
     Dates: start: 20220525, end: 20220530
  2. TYLENOL [Concomitant]
     Active Substance: ACETAMINOPHEN
     Dosage: 1000 MG (EVERY 6 HOURS)
     Dates: end: 202205

REACTIONS (7)
  - Drug-induced liver injury [Recovering/Resolving]
  - Dysgeusia [Unknown]
  - Hypertension [Unknown]
  - Abdominal pain [Unknown]
  - Rash [Unknown]
  - Vomiting [Unknown]
  - Tremor [Unknown]

NARRATIVE: CASE EVENT DATE: 20220501
